FAERS Safety Report 8444488-8 (Version None)
Quarter: 2012Q2

REPORT INFORMATION
  Report Type: 
  Country: None (occurrence: None)
  Receive Date: 20120618
  Receipt Date: 20120611
  Transmission Date: 20120825
  Serious: Yes (Other)
  Sender: FDA-Public Use
  Company Number: JP-B.I. PHARMACEUTICALS,INC./RIDGEFIELD-2012-BP-13432NB

PATIENT

DRUGS (1)
  1. PRADAXA [Suspect]
     Route: 065

REACTIONS (2)
  - OESOPHAGEAL CARCINOMA [None]
  - DYSPHAGIA [None]
